FAERS Safety Report 19263684 (Version 1)
Quarter: 2021Q2

REPORT INFORMATION
  Report Type: Spontaneous
  Country: PT (occurrence: PT)
  Receive Date: 20210517
  Receipt Date: 20210517
  Transmission Date: 20210717
  Serious: Yes (Hospitalization)
  Sender: FDA-Public Use
  Company Number: PT-LUPIN PHARMACEUTICALS INC.-2021-06964

PATIENT
  Age: 67 Year
  Sex: Female

DRUGS (14)
  1. MIDAZOLAM. [Concomitant]
     Active Substance: MIDAZOLAM
     Indication: SPINAL DISORDER
     Dosage: 4 MILLIGRAM
     Route: 042
  2. MIDAZOLAM. [Concomitant]
     Active Substance: MIDAZOLAM
     Indication: AGITATION
  3. PROPOFOL. [Concomitant]
     Active Substance: PROPOFOL
     Indication: SEDATION
     Dosage: UNK
     Route: 042
  4. RAMIPRIL/HYDROCHLOROTHIAZIDE [Concomitant]
     Active Substance: HYDROCHLOROTHIAZIDE\RAMIPRIL
     Indication: HYPERTENSION
     Dosage: UNK, LITTLE ADHERENCE TO MEDICATION
     Route: 065
  5. MIDAZOLAM. [Concomitant]
     Active Substance: MIDAZOLAM
     Indication: MYOCLONUS
     Dosage: 2 MILLIGRAM, INITIAL INDICATION NOT STATED
     Route: 042
  6. PANTOPRAZOLE [Concomitant]
     Active Substance: PANTOPRAZOLE
     Indication: PRODUCT USED FOR UNKNOWN INDICATION
     Dosage: UNK, LITTLE ADHERENCE TO MEDICATION
     Route: 065
  7. ACETAMINOPHEN. [Concomitant]
     Active Substance: ACETAMINOPHEN
     Indication: PRODUCT USED FOR UNKNOWN INDICATION
     Dosage: 1 GRAM
     Route: 042
  8. MAGNESIUM SULFATE. [Suspect]
     Active Substance: MAGNESIUM SULFATE
     Indication: EVIDENCE BASED TREATMENT
     Dosage: 2 GRAM
     Route: 042
  9. BROMAZEPAM [Concomitant]
     Active Substance: BROMAZEPAM
     Indication: DEPRESSION
     Dosage: UNK, LITTLE ADHERENCE TO MEDICATION
     Route: 065
  10. TRANEXAMIC ACID. [Concomitant]
     Active Substance: TRANEXAMIC ACID
     Indication: PRODUCT USED FOR UNKNOWN INDICATION
     Dosage: 500 MILLIGRAM, FOR 25 MIN
     Route: 065
  11. CALCIUM [Suspect]
     Active Substance: CALCIUM
     Indication: EVIDENCE BASED TREATMENT
     Dosage: 1 GRAM
     Route: 065
  12. CALCIUM [Suspect]
     Active Substance: CALCIUM
     Indication: ELECTROLYTE SUBSTITUTION THERAPY
  13. MAGNESIUM SULFATE. [Suspect]
     Active Substance: MAGNESIUM SULFATE
     Indication: ELECTROLYTE SUBSTITUTION THERAPY
  14. BUPINOSTRUM [Concomitant]
     Active Substance: BUPIVACAINE HYDROCHLORIDE
     Indication: SPINAL ANAESTHESIA
     Dosage: 10 MILLIGRAM,THE LUMBAR PUNCTURE WAS PERFORMED AT THE FIRST ATTEMPT AT L3?L4 INTERSPACE. AFTER THE V
     Route: 037

REACTIONS (2)
  - Hyperlactacidaemia [Recovered/Resolved]
  - Hyperthermia [Recovered/Resolved]
